FAERS Safety Report 13282202 (Version 1)
Quarter: 2017Q1

REPORT INFORMATION
  Report Type: Spontaneous
  Country: US (occurrence: US)
  Receive Date: 20170228
  Receipt Date: 20170228
  Transmission Date: 20170428
  Serious: Yes (Hospitalization)
  Sender: FDA-Public Use
  Company Number: None

PATIENT
  Age: 80 Year
  Sex: Male

DRUGS (1)
  1. SUTENT [Suspect]
     Active Substance: SUNITINIB MALATE
     Indication: RENAL CANCER
     Dosage: 50MG DAILY ON DAYS 1-28 EVERY  42 DAYS ORAL
     Route: 048
     Dates: start: 20160923, end: 20170128

REACTIONS (2)
  - Peripheral swelling [None]
  - Malaise [None]

NARRATIVE: CASE EVENT DATE: 20170128
